FAERS Safety Report 16329438 (Version 3)
Quarter: 2019Q2

REPORT INFORMATION
  Report Type: Report from Study
  Country: CA (occurrence: CA)
  Receive Date: 20190520
  Receipt Date: 20190528
  Transmission Date: 20190711
  Serious: Yes (Hospitalization)
  Sender: FDA-Public Use
  Company Number: CA-BEH-2019102335

PATIENT
  Sex: Female

DRUGS (20)
  1. HIZENTRA [Suspect]
     Active Substance: HUMAN IMMUNOGLOBULIN G
     Indication: PRIMARY IMMUNODEFICIENCY SYNDROME
     Dosage: 12 G, QOW
     Route: 058
     Dates: start: 20190426
  2. MAXALT [Concomitant]
     Active Substance: RIZATRIPTAN BENZOATE
  3. FERAMAX [Concomitant]
     Active Substance: IRON\POLYSACCHARIDES
  4. PREVACID [Concomitant]
     Active Substance: LANSOPRAZOLE
  5. BENADRYL [Concomitant]
     Active Substance: DIPHENHYDRAMINE HYDROCHLORIDE
  6. TYLENOL [Concomitant]
     Active Substance: ACETAMINOPHEN
  7. PATADAY [Concomitant]
     Active Substance: OLOPATADINE HYDROCHLORIDE
  8. BRICANYL [Concomitant]
     Active Substance: TERBUTALINE SULFATE
  9. IMMUNOGLOBULIN                     /00025201/ [Concomitant]
     Active Substance: HUMAN IMMUNOGLOBULIN G
     Indication: PRODUCT USED FOR UNKNOWN INDICATION
     Dosage: UNK
     Route: 042
     Dates: start: 20190513
  10. GLUMETZA [Concomitant]
     Active Substance: METFORMIN HYDROCHLORIDE
  11. BETADERM                           /00008501/ [Concomitant]
  12. GRAVOL [Concomitant]
     Active Substance: DIMENHYDRINATE
  13. FOLIC ACID. [Concomitant]
     Active Substance: FOLIC ACID
  14. SALOFALK                           /00000301/ [Concomitant]
     Active Substance: AMINOSALICYLIC ACID
  15. HYDROXYQUINOLINE [Concomitant]
  16. LACTULOSE. [Concomitant]
     Active Substance: LACTULOSE
  17. NOVORAPID [Concomitant]
     Active Substance: INSULIN ASPART
  18. VITAMIN D                          /00107901/ [Concomitant]
     Active Substance: ERGOCALCIFEROL
  19. CYCLOSPORINE. [Concomitant]
     Active Substance: CYCLOSPORINE
  20. ZOLPIDEM [Concomitant]
     Active Substance: ZOLPIDEM\ZOLPIDEM TARTRATE

REACTIONS (3)
  - Sepsis [Unknown]
  - Anxiety [Unknown]
  - Pyrexia [Unknown]

NARRATIVE: CASE EVENT DATE: 2019
